FAERS Safety Report 15835013 (Version 2)
Quarter: 2019Q3

REPORT INFORMATION
  Report Type: Spontaneous
  Country: US (occurrence: US)
  Receive Date: 20190116
  Receipt Date: 20190716
  Transmission Date: 20191004
  Serious: No
  Sender: FDA-Public Use
  Company Number: US-CHILTERN-US-2018-000259

PATIENT
  Sex: Female

DRUGS (3)
  1. COSOPT PF [Concomitant]
     Active Substance: DORZOLAMIDE HYDROCHLORIDE\TIMOLOL MALEATE
     Dosage: BOTH EYES
     Route: 047
  2. LUMIGAN [Concomitant]
     Active Substance: BIMATOPROST
     Dosage: BOTH EYES ONCE DAILY
     Route: 047
  3. RHOPRESSA [Suspect]
     Active Substance: NETARSUDIL MESYLATE
     Indication: GLAUCOMA
     Dosage: 2 GTT, QD, BETTIME
     Route: 047
     Dates: start: 20180816, end: 20181105

REACTIONS (3)
  - Conjunctival hyperaemia [Recovered/Resolved]
  - Eye allergy [Recovered/Resolved]
  - Eye swelling [Recovered/Resolved]

NARRATIVE: CASE EVENT DATE: 20180920
